APPROVED DRUG PRODUCT: FLUNISOLIDE
Active Ingredient: FLUNISOLIDE
Strength: 0.029MG/SPRAY
Dosage Form/Route: SPRAY, METERED;NASAL
Application: A077436 | Product #001
Applicant: APOTEX INC
Approved: Aug 9, 2007 | RLD: No | RS: No | Type: DISCN